FAERS Safety Report 8254873-5 (Version None)
Quarter: 2012Q2

REPORT INFORMATION
  Report Type: 
  Country: None (occurrence: None)
  Receive Date: 20120403
  Receipt Date: 20120322
  Transmission Date: 20120825
  Serious: Yes (Other)
  Sender: FDA-Public Use
  Company Number: US-SANOFI-AVENTIS-2011SA083945

PATIENT
  Age: 59 Year
  Sex: Female

DRUGS (9)
  1. HUMALOG [Suspect]
     Route: 065
  2. LANTUS [Suspect]
     Dosage: DOSE:45 UNIT(S)
     Route: 058
     Dates: start: 20110101, end: 20111216
  3. LANTUS [Suspect]
     Dosage: DOSE:25 UNIT(S)
     Route: 058
     Dates: start: 20110518
  4. SOLOSTAR [Suspect]
     Dates: start: 20110401
  5. GEMFIBROZIL [Concomitant]
     Dates: start: 19980101
  6. LANTUS [Suspect]
     Dosage: DOSE:25 UNIT(S)
     Route: 058
     Dates: start: 20110518
  7. SOLOSTAR [Suspect]
     Dates: start: 20110401
  8. LISINOPRIL [Concomitant]
     Dates: start: 20010101
  9. AMLODIPINE [Concomitant]
     Dates: start: 20100101

REACTIONS (6)
  - CATARACT NUCLEAR [None]
  - VISION BLURRED [None]
  - BLOOD GLUCOSE INCREASED [None]
  - SKIN ODOUR ABNORMAL [None]
  - EYE DISORDER [None]
  - WEIGHT DECREASED [None]
